FAERS Safety Report 7897032-8 (Version None)
Quarter: 2011Q4

REPORT INFORMATION
  Report Type: 
  Country: None (occurrence: None)
  Receive Date: 20111107
  Receipt Date: 20111103
  Transmission Date: 20120403
  Serious: No
  Sender: FDA-Public Use
  Company Number: US-PFIZER INC-2011260341

PATIENT
  Sex: Female
  Weight: 58.957 kg

DRUGS (1)
  1. ALAVERT [Suspect]
     Indication: HYPERSENSITIVITY
     Dosage: ALAVERT ALLERGY ORALLY DISINTEGRATING TABLET 12 CT BLISTER
     Dates: start: 20111023, end: 20111023

REACTIONS (3)
  - DRUG INEFFECTIVE [None]
  - NASAL DRYNESS [None]
  - INSOMNIA [None]
